FAERS Safety Report 16066984 (Version 1)
Quarter: 2019Q1

REPORT INFORMATION
  Report Type: Report from Study
  Country: BG (occurrence: BG)
  Receive Date: 20190313
  Receipt Date: 20190313
  Transmission Date: 20190418
  Serious: Yes (Other)
  Sender: FDA-Public Use
  Company Number: PHHY2019BG055510

PATIENT
  Age: 62 Year
  Sex: Male
  Weight: 80 kg

DRUGS (1)
  1. COSENTYX [Suspect]
     Active Substance: SECUKINUMAB
     Indication: PSORIATIC ARTHROPATHY
     Dosage: 300 MG, UNK
     Route: 058
     Dates: start: 201808

REACTIONS (1)
  - Pneumonia bacterial [Unknown]

NARRATIVE: CASE EVENT DATE: 201902
